FAERS Safety Report 25089117 (Version 1)
Quarter: 2025Q1

REPORT INFORMATION
  Report Type: Spontaneous
  Country: US (occurrence: US)
  Receive Date: 20250318
  Receipt Date: 20250318
  Transmission Date: 20250408
  Serious: Yes (Other)
  Sender: INTRA-CELLULAR THERAPIES
  Company Number: US-INTRA-CELLULAR THERAPIES, INC.-2025ICT00338

PATIENT

DRUGS (2)
  1. CAPLYTA [Suspect]
     Active Substance: LUMATEPERONE
  2. LITHIUM [Suspect]
     Active Substance: LITHIUM

REACTIONS (3)
  - Serotonin syndrome [Unknown]
  - Gastrointestinal disorder [Unknown]
  - Sleep disorder [Unknown]
